FAERS Safety Report 10353817 (Version 1)
Quarter: 2014Q3

REPORT INFORMATION
  Report Type: Spontaneous
  Country: US (occurrence: None)
  Receive Date: 20140729
  Receipt Date: 20140729
  Transmission Date: 20150326
  Serious: Yes (Hospitalization)
  Sender: FDA-Public Use
  Company Number: None

PATIENT
  Sex: Female

DRUGS (1)
  1. ACTIMMUNE [Suspect]
     Active Substance: INTERFERON GAMMA-1B
     Route: 058
     Dates: start: 2010

REACTIONS (5)
  - Pain [None]
  - Musculoskeletal pain [None]
  - Joint effusion [None]
  - Arthralgia [None]
  - Unevaluable event [None]
